FAERS Safety Report 7439801-4 (Version None)
Quarter: 2011Q2

REPORT INFORMATION
  Report Type: 
  Country: None (occurrence: None)
  Receive Date: 20110427
  Receipt Date: 20110420
  Transmission Date: 20111010
  Serious: Yes (Death)
  Sender: FDA-Public Use
  Company Number: US-BAXTER-2011BH011944

PATIENT
  Age: 60 Year
  Sex: Male

DRUGS (1)
  1. DIANEAL PD-2 W/ DEXTROSE 1.5% [Suspect]
     Indication: PERITONEAL DIALYSIS
     Route: 033
     Dates: end: 20110404

REACTIONS (3)
  - CARDIAC DISORDER [None]
  - CARDIAC FAILURE [None]
  - MYOCARDIAL INFARCTION [None]
